FAERS Safety Report 7928043-1 (Version None)
Quarter: 2011Q4

REPORT INFORMATION
  Report Type: 
  Country: None (occurrence: None)
  Receive Date: 20111118
  Receipt Date: 20111109
  Transmission Date: 20120403
  Serious: Yes (Hospitalization)
  Sender: FDA-Public Use
  Company Number: US-BAYER-2011-063818

PATIENT
  Age: 17 Year
  Sex: Female
  Weight: 50 kg

DRUGS (8)
  1. PRILOSEC [Concomitant]
     Indication: GASTROOESOPHAGEAL REFLUX DISEASE
  2. ALLEGRA [Concomitant]
     Indication: MULTIPLE ALLERGIES
  3. ZYRTEC [Concomitant]
     Indication: MULTIPLE ALLERGIES
  4. ZOFRAN [Concomitant]
     Indication: NAUSEA
     Dosage: 4 MG, PRN
  5. YASMIN [Suspect]
     Indication: CONTRACEPTION
     Dosage: UNK
     Dates: start: 20060901, end: 20080701
  6. YASMIN [Suspect]
     Indication: PREMENSTRUAL SYNDROME
     Dosage: UNK
     Dates: start: 20080901, end: 20090201
  7. DIFLUCAN [Concomitant]
     Dosage: 100 MG, QD
     Route: 048
     Dates: start: 20070502
  8. ZOFRAN [Concomitant]
     Indication: VOMITING

REACTIONS (5)
  - EMOTIONAL DISTRESS [None]
  - GALLBLADDER DISORDER [None]
  - INJURY [None]
  - PAIN [None]
  - CHOLECYSTITIS CHRONIC [None]
